FAERS Safety Report 13342285 (Version 1)
Quarter: 2017Q1

REPORT INFORMATION
  Report Type: Spontaneous
  Country: US (occurrence: US)
  Receive Date: 20170316
  Receipt Date: 20170316
  Transmission Date: 20170428
  Serious: Yes (Other)
  Sender: FDA-Public Use
  Company Number: None

PATIENT
  Age: 60 Year
  Sex: Female
  Weight: 74.84 kg

DRUGS (2)
  1. GENERIC EFFEXOR [Suspect]
     Active Substance: VENLAFAXINE HYDROCHLORIDE
     Indication: SCHIZOAFFECTIVE DISORDER
  2. GENERIC EFFEXOR [Suspect]
     Active Substance: VENLAFAXINE HYDROCHLORIDE
     Indication: BORDERLINE PERSONALITY DISORDER

REACTIONS (6)
  - Irritability [None]
  - Treatment failure [None]
  - Mood swings [None]
  - Depression [None]
  - Insomnia [None]
  - Product substitution issue [None]

NARRATIVE: CASE EVENT DATE: 20161102
